FAERS Safety Report 5719078-8 (Version None)
Quarter: 2008Q2

REPORT INFORMATION
  Report Type: 
  Country: None (occurrence: None)
  Receive Date: 20080423
  Receipt Date: 20080416
  Transmission Date: 20081010
  Serious: Yes (Life-Threatening)
  Sender: FDA-Public Use
  Company Number: 2007SP024646

PATIENT
  Age: 77 Year
  Sex: Female
  Weight: 43 kg

DRUGS (7)
  1. TEMODAL (TEMOZOLOMIDE) (TEMOZOLOMIDE) [Suspect]
     Indication: GLIOBLASTOMA MULTIFORME
     Dosage: 100 MG;QD;PO
     Route: 048
     Dates: start: 20071011, end: 20071101
  2. FAMOTIDINE [Suspect]
     Dosage: 2 DF; PO
     Route: 048
     Dates: start: 20070928, end: 20071104
  3. VALPROATE SODIUM [Suspect]
     Dosage: 2 DF; PO
     Route: 048
     Dates: start: 20070928, end: 20071104
  4. NAUZELIN (DOMPERIDONE) [Suspect]
     Dosage: 1 DF; PO
     Route: 048
     Dates: start: 20071012, end: 20071107
  5. BACTRIM [Suspect]
     Dosage: 4 DF; PO
     Route: 048
     Dates: start: 20071013, end: 20071107
  6. SELBEX (TEPRENONE) [Suspect]
     Dosage: 150 MG; PO
     Route: 048
     Dates: start: 20071105, end: 20071107
  7. ZONISAMIDE [Suspect]
     Dosage: 200 MG; PO
     Route: 048
     Dates: start: 20071105, end: 20071107

REACTIONS (3)
  - DRUG ERUPTION [None]
  - HEPATIC FUNCTION ABNORMAL [None]
  - HYPERTHERMIA [None]
